FAERS Safety Report 4805650-6 (Version None)
Quarter: 2005Q4

REPORT INFORMATION
  Report Type: 
  Country: None (occurrence: None)
  Receive Date: 20051021
  Receipt Date: 20050527
  Transmission Date: 20060501
  Serious: Yes (Other)
  Sender: FDA-Public Use
  Company Number: US-ROCHE-406547

PATIENT
  Age: 52 Year
  Sex: Female
  Weight: 81 kg

DRUGS (4)
  1. PEGASYS [Suspect]
     Indication: HEPATITIS C
     Route: 058
     Dates: start: 20041120, end: 20050728
  2. COPEGUS [Suspect]
     Indication: HEPATITIS C
     Dosage: 600 MG AT AM AND 400 MG AT PM.
     Route: 048
     Dates: start: 20041120, end: 20050728
  3. PROCRIT [Concomitant]
     Indication: ANAEMIA
     Route: 048
  4. IRON SUPPLEMENT NOS [Concomitant]
     Indication: ANAEMIA
     Route: 048

REACTIONS (8)
  - ALOPECIA [None]
  - ANAEMIA [None]
  - DYSPNOEA [None]
  - HEART RATE INCREASED [None]
  - HYPERTENSION [None]
  - OEDEMA [None]
  - PALPITATIONS [None]
  - WEIGHT INCREASED [None]
